FAERS Safety Report 5287549-7 (Version None)
Quarter: 2007Q1

REPORT INFORMATION
  Report Type: 
  Country: None (occurrence: None)
  Receive Date: 20070126
  Receipt Date: 20061102
  Transmission Date: 20070707
  Serious: No
  Sender: FDA-Public Use
  Company Number: 2006CT000894

PATIENT
  Age: 85 Year
  Sex: Female
  Weight: 57 kg

DRUGS (12)
  1. VENTAVIS [Suspect]
     Indication: PULMONARY HYPERTENSION
     Dosage: 5 UG;1-3X/DAY;INH
     Route: 055
     Dates: start: 20060613, end: 20060922
  2. CENTRUM [Concomitant]
  3. FUROSEMIDE [Concomitant]
  4. CARDIZEM [Concomitant]
  5. KLOR-CON [Concomitant]
  6. CELEX [Concomitant]
  7. ASPIRIN [Concomitant]
  8. ESTROGENS CONJUGATED [Concomitant]
  9. SYNTHROID [Concomitant]
  10. PAMELOR [Concomitant]
  11. ZINC [Concomitant]
  12. TRACLEER [Concomitant]

REACTIONS (3)
  - BRUXISM [None]
  - INSOMNIA [None]
  - NO THERAPEUTIC RESPONSE [None]
